FAERS Safety Report 7454870-3 (Version None)
Quarter: 2011Q2

REPORT INFORMATION
  Report Type: 
  Country: None (occurrence: None)
  Receive Date: 20110503
  Receipt Date: 20110426
  Transmission Date: 20111010
  Serious: Yes (Death, Hospitalization)
  Sender: FDA-Public Use
  Company Number: DE-BRISTOL-MYERS SQUIBB COMPANY-15491996

PATIENT
  Age: 66 Year
  Sex: Female
  Weight: 86 kg

DRUGS (1)
  1. IPILIMUMAB [Suspect]
     Indication: MALIGNANT MELANOMA
     Route: 042
     Dates: start: 20101209, end: 20110115

REACTIONS (5)
  - DIVERTICULITIS [None]
  - COLITIS [None]
  - PERITONITIS [None]
  - ARRHYTHMIA [None]
  - GASTROINTESTINAL PERFORATION [None]
